FAERS Safety Report 9103497 (Version 2)
Quarter: 2013Q1

REPORT INFORMATION
  Report Type: Spontaneous
  Country: US (occurrence: US)
  Receive Date: 20130219
  Receipt Date: 20130308
  Transmission Date: 20140127
  Serious: No
  Sender: FDA-Public Use
  Company Number: US-PFIZER INC-2013061687

PATIENT
  Sex: Female

DRUGS (2)
  1. LYRICA [Suspect]
     Indication: MEDICAL DEVICE IMPLANTATION
     Dosage: 75 MG A DAY
     Route: 048
     Dates: start: 201301
  2. LYRICA [Suspect]
     Indication: BLOOD DISORDER

REACTIONS (3)
  - Vision blurred [Recovered/Resolved]
  - Headache [Recovered/Resolved]
  - Off label use [Unknown]
